FAERS Safety Report 7276459-1 (Version None)
Quarter: 2011Q1

REPORT INFORMATION
  Report Type: 
  Country: None (occurrence: None)
  Receive Date: 20110131
  Receipt Date: 20110118
  Transmission Date: 20110831
  Serious: Yes (Other)
  Sender: FDA-Public Use
  Company Number: 2010SP027636

PATIENT
  Age: 30 Year
  Sex: Female

DRUGS (6)
  1. LYMECYCLINE [Concomitant]
  2. NOURAKIN [Concomitant]
  3. IMPLANON [Suspect]
     Indication: PRODUCT USED FOR UNKNOWN INDICATION
     Dosage: (1 DF) (1 DF)
     Dates: start: 20070505, end: 20100428
  4. IMPLANON [Suspect]
     Indication: PRODUCT USED FOR UNKNOWN INDICATION
     Dosage: (1 DF) (1 DF)
     Dates: start: 20100428, end: 20100513
  5. FOLIC ACID [Concomitant]
  6. IRON SUPPLEMENT [Concomitant]

REACTIONS (3)
  - GESTATIONAL HYPERTENSION [None]
  - PREGNANCY WITH IMPLANT CONTRACEPTIVE [None]
  - MENSTRUATION IRREGULAR [None]
